FAERS Safety Report 18250662 (Version 1)
Quarter: 2020Q3

REPORT INFORMATION
  Report Type: Spontaneous
  Country: CN (occurrence: CN)
  Receive Date: 20200910
  Receipt Date: 20200910
  Transmission Date: 20201103
  Serious: Yes (Hospitalization)
  Sender: FDA-Public Use
  Company Number: CN-B.I. PHARMACEUTICALS,INC./RIDGEFIELD-2020-BI-046045

PATIENT
  Age: 69 Year
  Sex: Male

DRUGS (2)
  1. PRADAXA [Suspect]
     Active Substance: DABIGATRAN ETEXILATE MESYLATE
     Indication: CORONARY ARTERY DISEASE
     Route: 048
     Dates: start: 20200730, end: 20200807
  2. CLOPIDOGREL HYDROCHLORIDE [Suspect]
     Active Substance: CLOPIDOGREL HYDROCHLORIDE
     Indication: CORONARY ARTERY DISEASE
     Route: 048
     Dates: start: 20200807, end: 20200810

REACTIONS (1)
  - Coagulopathy [Recovering/Resolving]

NARRATIVE: CASE EVENT DATE: 20200810
